FAERS Safety Report 7016628-9 (Version None)
Quarter: 2010Q3

REPORT INFORMATION
  Report Type: 
  Country: None (occurrence: None)
  Receive Date: 20100927
  Receipt Date: 20100915
  Transmission Date: 20110219
  Serious: Yes (Hospitalization, Other)
  Sender: FDA-Public Use
  Company Number: B0675860A

PATIENT
  Age: 50 Year
  Sex: Female

DRUGS (4)
  1. AVANDIA [Suspect]
     Dosage: 4MG PER DAY
     Route: 048
  2. ASPIRIN [Concomitant]
     Route: 065
  3. ANTI-THROMBIN [Concomitant]
     Route: 065
  4. UNKNOWN DRUG [Concomitant]
     Route: 065

REACTIONS (2)
  - ANAEMIA [None]
  - LEUKOPENIA [None]
